FAERS Safety Report 4263629-X (Version None)
Quarter: 2004Q1

REPORT INFORMATION
  Report Type: 
  Country: None (occurrence: None)
  Receive Date: 20040102
  Receipt Date: 20031225
  Transmission Date: 20041129
  Serious: Yes (Life-Threatening)
  Sender: FDA-Public Use
  Company Number: 03H-087-0242656-00

PATIENT
  Age: 78 Year
  Sex: Male
  Weight: 49.5 kg

DRUGS (6)
  1. SEVOFLURANE LIQUID FOR INHALATION (SEVOFLURANE) (SEVORFLURANE) [Suspect]
     Indication: ANAESTHESIA
     Dosage: INHALATION
     Route: 055
  2. LIDOCAINE [Concomitant]
  3. THIAMYLAL [Concomitant]
  4. VECURONIUM [Concomitant]
  5. OXYGEN [Concomitant]
  6. NITROUS OXIDE [Concomitant]

REACTIONS (6)
  - ANAESTHETIC COMPLICATION CARDIAC [None]
  - ARTERIOSPASM CORONARY [None]
  - BLOOD PRESSURE DECREASED [None]
  - CARDIAC ARREST [None]
  - ELECTROCARDIOGRAM ST SEGMENT ELEVATION [None]
  - HEART RATE DECREASED [None]
